FAERS Safety Report 6768759-6 (Version None)
Quarter: 2010Q2

REPORT INFORMATION
  Report Type: 
  Country: None (occurrence: None)
  Receive Date: 20100611
  Receipt Date: 20100531
  Transmission Date: 20101027
  Serious: Yes (Other)
  Sender: FDA-Public Use
  Company Number: 2010AP001024

PATIENT
  Age: 48 Year
  Sex: Female

DRUGS (10)
  1. ALENDRONATE SODIUM [Suspect]
     Indication: OSTEOPOROSIS
     Dosage: 70 MG; QW
  2. PREDNISONE [Concomitant]
  3. ESTRADIOL [Concomitant]
  4. GLUCOCORTICOIDS [Concomitant]
  5. HYDROXYCHLOROQUINE [Concomitant]
  6. METHOTREXATE [Concomitant]
  7. CYCLOPHOSPHAMIDE [Concomitant]
  8. LEFLUNOMIDE [Concomitant]
  9. GOLD [Concomitant]
  10. ADALIMUMAB [Concomitant]

REACTIONS (2)
  - STRESS FRACTURE [None]
  - TIBIA FRACTURE [None]
